FAERS Safety Report 17098933 (Version 1)
Quarter: 2019Q4

REPORT INFORMATION
  Report Type: Spontaneous
  Country: US (occurrence: US)
  Receive Date: 20191202
  Receipt Date: 20191202
  Transmission Date: 20200122
  Serious: No
  Sender: FDA-Public Use
  Company Number: US-PFIZER INC-2019513845

PATIENT
  Sex: Female

DRUGS (2)
  1. ANASTROZOLE. [Suspect]
     Active Substance: ANASTROZOLE
     Dosage: UNK
  2. EXEMESTANE. [Suspect]
     Active Substance: EXEMESTANE
     Dosage: UNK

REACTIONS (7)
  - Blood calcium abnormal [Unknown]
  - Sluggishness [Unknown]
  - Blood potassium abnormal [Unknown]
  - Blood glucose increased [Unknown]
  - Arthralgia [Unknown]
  - Pain [Unknown]
  - Blood pressure increased [Unknown]
